FAERS Safety Report 18661339 (Version 1)
Quarter: 2020Q4

REPORT INFORMATION
  Report Type: Other
  Country: JP (occurrence: JP)
  Receive Date: 20201224
  Receipt Date: 20201224
  Transmission Date: 20210114
  Serious: Yes (Hospitalization)
  Sender: FDA-Public Use
  Company Number: JP-NAVINTA LLC-000111

PATIENT
  Age: 49 Year
  Sex: Female

DRUGS (5)
  1. VITAMIN B1 [Concomitant]
     Active Substance: THIAMINE HYDROCHLORIDE
     Indication: PRODUCT USED FOR UNKNOWN INDICATION
     Dosage: 1000 ML/DAY
     Route: 042
  2. NICARDIPINE [Suspect]
     Active Substance: NICARDIPINE
     Indication: PRODUCT USED FOR UNKNOWN INDICATION
     Dosage: 24 MG/DAY
     Route: 042
  3. FASUDIL HYDROCHLORIDE [Concomitant]
     Active Substance: FASUDIL HYDROCHLORIDE
     Indication: PRODUCT USED FOR UNKNOWN INDICATION
     Dosage: 90 MG/DAY
     Route: 041
  4. NICARDIPINE [Suspect]
     Active Substance: NICARDIPINE
     Indication: INTRA-CEREBRAL ANEURYSM OPERATION
     Dosage: 2 MG OF AN UNDILUTED SOLUTION OF NICARDIPINE
  5. OZAGREL SODIUM [Concomitant]
     Active Substance: OZAGREL SODIUM
     Indication: PRODUCT USED FOR UNKNOWN INDICATION
     Dosage: 80 MG/DAY
     Route: 042

REACTIONS (1)
  - Vasospasm [Recovered/Resolved]
